FAERS Safety Report 7552822-6 (Version None)
Quarter: 2011Q2

REPORT INFORMATION
  Report Type: 
  Country: None (occurrence: None)
  Receive Date: 20110616
  Receipt Date: 20101021
  Transmission Date: 20111010
  Serious: Yes (Hospitalization)
  Sender: FDA-Public Use
  Company Number: AT-CEPHALON-2011003072

PATIENT
  Sex: Female

DRUGS (6)
  1. ZOLPIDEM TARTRATE [Concomitant]
  2. BISOPROLOL FUMARATE [Concomitant]
  3. BENDAMUSTINE HCL [Suspect]
     Route: 042
     Dates: start: 20101011
  4. RABEPRAZOLE SODIUM [Concomitant]
  5. CONCOR PLUS [Concomitant]
  6. RITUXIMAB [Suspect]
     Route: 042
     Dates: start: 20101011

REACTIONS (3)
  - GASTROENTERITIS [None]
  - NEUTROPENIA [None]
  - CYSTITIS [None]
